FAERS Safety Report 25097248 (Version 1)
Quarter: 2025Q1

REPORT INFORMATION
  Report Type: Spontaneous
  Country: US (occurrence: US)
  Receive Date: 20250320
  Receipt Date: 20250320
  Transmission Date: 20250409
  Serious: No
  Sender: APOTEX
  Company Number: US-APOTEX-2025AP003064

PATIENT
  Age: 71 Year
  Sex: Male

DRUGS (9)
  1. TIMOLOL [Suspect]
     Active Substance: TIMOLOL
     Indication: Intraocular pressure increased
     Dosage: UNK UNK, QD
     Route: 061
  2. TIMOLOL [Suspect]
     Active Substance: TIMOLOL
     Dosage: UNK UNK, BID
     Route: 061
  3. TRAVOPROST [Suspect]
     Active Substance: TRAVOPROST
     Indication: Intraocular pressure increased
     Dosage: UNK UNK, Q.H.S.
     Route: 061
  4. LATANOPROST [Suspect]
     Active Substance: LATANOPROST
     Indication: Intraocular pressure increased
     Dosage: UNK UNK, Q.H.S.
     Route: 061
  5. NETARSUDIL [Suspect]
     Active Substance: NETARSUDIL
     Indication: Intraocular pressure increased
     Dosage: UNK, Q.H.S.
     Route: 061
  6. LATANOPROST\NETARSUDIL MESYLATE [Suspect]
     Active Substance: LATANOPROST\NETARSUDIL MESYLATE
     Indication: Intraocular pressure increased
     Dosage: UNK UNK, Q.H.S.
     Route: 061
  7. BRIMONIDINE [Suspect]
     Active Substance: BRIMONIDINE TARTRATE
     Indication: Intraocular pressure increased
     Dosage: UNK, BID
     Route: 061
  8. DORZOLAMIDE\TIMOLOL [Suspect]
     Active Substance: DORZOLAMIDE\TIMOLOL
     Indication: Intraocular pressure increased
     Dosage: UNK UNK, BID
     Route: 061
  9. DORZOLAMIDE\TIMOLOL [Suspect]
     Active Substance: DORZOLAMIDE\TIMOLOL
     Dosage: UNK UNK, QD
     Route: 061

REACTIONS (3)
  - Vision blurred [Recovered/Resolved]
  - Metamorphopsia [Recovered/Resolved]
  - Intraocular pressure decreased [Recovered/Resolved]
